FAERS Safety Report 9758448 (Version 3)
Quarter: 2014Q1

REPORT INFORMATION
  Report Type: Report from Study
  Country: US (occurrence: US)
  Receive Date: 20131216
  Receipt Date: 20140307
  Transmission Date: 20141002
  Serious: Yes (Death)
  Sender: FDA-Public Use
  Company Number: US-SA-2013SA130287

PATIENT
  Age: 66 Year
  Sex: Female

DRUGS (4)
  1. AUBAGIO [Suspect]
     Indication: MULTIPLE SCLEROSIS
     Route: 065
  2. ALL OTHER THERAPEUTIC PRODUCTS [Concomitant]
  3. KLONOPIN [Concomitant]
  4. NEURONTIN [Concomitant]

REACTIONS (4)
  - Death [Fatal]
  - Convulsion [Unknown]
  - Somnolence [Unknown]
  - Depressed level of consciousness [Unknown]
